FAERS Safety Report 8917096 (Version 3)
Quarter: 2013Q3

REPORT INFORMATION
  Report Type: Report from Study
  Country: JP (occurrence: JP)
  Receive Date: 20121120
  Receipt Date: 20130710
  Transmission Date: 20140515
  Serious: Yes (Other)
  Sender: FDA-Public Use
  Company Number: JP-009507513-1211JPN007085

PATIENT
  Age: 52 Year
  Sex: Female
  Weight: 51 kg

DRUGS (8)
  1. PEGINTRON [Suspect]
     Indication: CHRONIC HEPATITIS C
     Dosage: 1.5 MICROGRAM PER KILOGRAM, QW
     Route: 058
     Dates: start: 20120920, end: 20121023
  2. REBETOL [Suspect]
     Indication: CHRONIC HEPATITIS C
     Dosage: 600 MG, QD
     Route: 048
     Dates: start: 20120920, end: 20121023
  3. TELAVIC [Suspect]
     Indication: CHRONIC HEPATITIS C
     Dosage: 1500 MG, QD
     Route: 048
     Dates: start: 20120920, end: 20121023
  4. INVESTIGATIONAL DRUG [Suspect]
     Indication: PROPHYLAXIS
     Dosage: 200 MG, QD,FORMULATION : POR
     Route: 048
     Dates: start: 20120918, end: 20121023
  5. INVESTIGATIONAL DRUG [Suspect]
     Indication: HYPERURICAEMIA
  6. ALOSITOL [Suspect]
     Indication: HYPERURICAEMIA
     Dosage: 100 MG, QD
     Route: 048
     Dates: start: 20120918, end: 20121023
  7. JANUVIA TABLETS 50MG [Concomitant]
     Indication: TYPE 2 DIABETES MELLITUS
     Dosage: 50 MG, QD, FORMULATION: POR
     Route: 048
  8. FAMOTIDINE [Concomitant]
     Indication: PROPHYLAXIS
     Dosage: 20 MG, QD, FORMULATION : POR
     Route: 048
     Dates: start: 20121009

REACTIONS (5)
  - Drug eruption [Recovering/Resolving]
  - White blood cell count increased [Recovering/Resolving]
  - Pyrexia [Recovering/Resolving]
  - Decreased appetite [Recovering/Resolving]
  - Depression [Recovering/Resolving]
